FAERS Safety Report 8035843-9 (Version None)
Quarter: 2012Q1

REPORT INFORMATION
  Report Type: 
  Country: None (occurrence: None)
  Receive Date: 20120111
  Receipt Date: 20120111
  Transmission Date: 20120608
  Serious: Yes (Hospitalization)
  Sender: FDA-Public Use
  Company Number: None

PATIENT
  Age: 23 Year
  Sex: Female
  Weight: 120.2 kg

DRUGS (1)
  1. LOESTRIN 24 FE [Suspect]
     Indication: MENSTRUAL DISORDER
     Dates: start: 20111101, end: 20111230

REACTIONS (3)
  - LIGAMENT SPRAIN [None]
  - DEEP VEIN THROMBOSIS [None]
  - PAIN [None]
